FAERS Safety Report 24213385 (Version 1)
Quarter: 2024Q3

REPORT INFORMATION
  Report Type: Spontaneous
  Country: US (occurrence: None)
  Receive Date: 20240814
  Receipt Date: 20240814
  Transmission Date: 20241017
  Serious: Yes (Other)
  Sender: Public
  Company Number: None

PATIENT
  Age: 73 Year
  Sex: Male
  Weight: 76.6 kg

DRUGS (1)
  1. CARBOPLATIN [Suspect]
     Active Substance: CARBOPLATIN
     Indication: Lung neoplasm malignant
     Dates: start: 20240716

REACTIONS (5)
  - Cough [None]
  - Throat lesion [None]
  - Erythema [None]
  - Infusion related reaction [None]
  - Blood pressure increased [None]

NARRATIVE: CASE EVENT DATE: 20240813
